FAERS Safety Report 8325359-4 (Version None)
Quarter: 2012Q2

REPORT INFORMATION
  Report Type: 
  Country: None (occurrence: None)
  Receive Date: 20120501
  Receipt Date: 20120424
  Transmission Date: 20120825
  Serious: Yes (Hospitalization, Other)
  Sender: FDA-Public Use
  Company Number: US-JNJFOC-20120206268

PATIENT
  Sex: Male
  Weight: 106.6 kg

DRUGS (8)
  1. FENTANYL-100 [Suspect]
     Dosage: (NDC-0781-7241-55)
     Route: 062
     Dates: start: 20120101
  2. HYDROCODONE [Concomitant]
     Indication: PAIN
     Dosage: DAILY
     Route: 048
  3. FENTANYL-100 [Suspect]
     Indication: NEUROPATHY PERIPHERAL
     Dosage: (NDC-0781-7241-55)
     Route: 062
     Dates: start: 20120125, end: 20120201
  4. VENLAFAXINE [Concomitant]
     Route: 048
  5. CODEINE [Concomitant]
     Route: 048
  6. LORAZEPAM [Concomitant]
     Indication: HYPERTENSION
     Dosage: UPTO 5 PER DAY
     Route: 048
  7. DURAGESIC-100 [Suspect]
     Indication: ACUTE POLYNEUROPATHY
     Route: 062
     Dates: start: 20110801, end: 20120101
  8. FENTANYL-100 [Suspect]
     Dosage: (NDC-0781-7240-55)
     Route: 062
     Dates: start: 20110801, end: 20120101

REACTIONS (5)
  - HYPERSOMNIA [None]
  - BURSITIS [None]
  - INAPPROPRIATE SCHEDULE OF DRUG ADMINISTRATION [None]
  - OSTEOARTHRITIS [None]
  - ARTHROPATHY [None]
